FAERS Safety Report 7515236-0 (Version None)
Quarter: 2011Q2

REPORT INFORMATION
  Report Type: 
  Country: None (occurrence: None)
  Receive Date: 20110601
  Receipt Date: 20100602
  Transmission Date: 20111010
  Serious: No
  Sender: FDA-Public Use
  Company Number: US-PFIZER INC-2010070043

PATIENT
  Sex: Female

DRUGS (8)
  1. SYNTHROID [Concomitant]
     Indication: BASEDOW'S DISEASE
     Dosage: UNK
  2. CHANTIX [Suspect]
     Indication: SMOKING CESSATION THERAPY
     Dosage: 0.5 MG, DAILY
     Route: 048
     Dates: start: 20100527
  3. LOTREL [Concomitant]
     Dosage: UNK
  4. PLAVIX [Concomitant]
     Dosage: UNK
  5. IRON [Concomitant]
     Dosage: UNK
  6. LIPITOR [Concomitant]
     Dosage: UNK
  7. ACETYLSALICYLIC ACID [Concomitant]
     Dosage: UNK
  8. ESTRATEST [Concomitant]
     Dosage: UNK

REACTIONS (3)
  - NAUSEA [None]
  - FLATULENCE [None]
  - VOMITING [None]
